FAERS Safety Report 9434708 (Version 2)
Quarter: 2013Q3

REPORT INFORMATION
  Report Type: Spontaneous
  Country: JP (occurrence: JP)
  Receive Date: 20130801
  Receipt Date: 20130906
  Transmission Date: 20140515
  Serious: Yes (Other)
  Sender: FDA-Public Use
  Company Number: JP-ASTELLAS-2013JP008007

PATIENT
  Age: 42 Year
  Sex: Male
  Weight: 54.4 kg

DRUGS (13)
  1. PROGRAF [Suspect]
     Indication: POLYMYOSITIS
     Dosage: 6 MG, UID/QD
     Route: 048
     Dates: start: 20121015, end: 20130610
  2. PROGRAF [Interacting]
     Indication: SYSTEMIC LUPUS ERYTHEMATOSUS
  3. PREDONINE /00016201/ [Suspect]
     Indication: POLYMYOSITIS
     Dosage: 20 MG, BID
     Route: 048
     Dates: start: 200502
  4. PREDONINE /00016201/ [Suspect]
     Indication: SYSTEMIC LUPUS ERYTHEMATOSUS
     Dosage: 25 MG, UNKNOWN/D
     Route: 048
  5. RIFADIN /00146901/ [Interacting]
     Indication: ATYPICAL MYCOBACTERIAL INFECTION
     Dosage: 450 MG, UID/QD
     Route: 048
     Dates: start: 20121008
  6. NEXIUM                             /01479302/ [Concomitant]
     Indication: ULCER
     Dosage: 20 MG, UID/QD
     Route: 048
     Dates: start: 20121019
  7. EBUTOL                             /00022301/ [Concomitant]
     Indication: ATYPICAL MYCOBACTERIAL INFECTION
     Dosage: 750 MG, UID/QD
     Route: 048
     Dates: start: 20121008
  8. CALFINA [Concomitant]
     Indication: OSTEOPOROSIS
     Dosage: 0.5 UG, UID/QD
     Route: 048
     Dates: start: 20121206
  9. CLARITH [Concomitant]
     Indication: ATYPICAL MYCOBACTERIAL INFECTION
     Dosage: 400 MG, BID
     Route: 048
     Dates: start: 20121008
  10. BIOFERMIN R [Concomitant]
     Indication: DIARRHOEA
     Dosage: 1 DF, TID
     Route: 048
     Dates: start: 20121126
  11. SELTOUCH [Concomitant]
     Indication: ARTHRALGIA
     Dosage: UNK
     Route: 061
  12. ISODINE GARGLE [Concomitant]
     Indication: INFECTION SUSCEPTIBILITY INCREASED
     Dosage: UNK
     Route: 061
  13. TIMOPTOL [Concomitant]
     Indication: GLAUCOMA
     Dosage: UNK
     Route: 047

REACTIONS (3)
  - Intentional drug misuse [Unknown]
  - Drug interaction [Unknown]
  - Glucose tolerance impaired [Recovering/Resolving]
